FAERS Safety Report 8289783-0 (Version None)
Quarter: 2012Q2

REPORT INFORMATION
  Report Type: 
  Country: None (occurrence: None)
  Receive Date: 20120417
  Receipt Date: 20120416
  Transmission Date: 20120825
  Serious: Yes (Other)
  Sender: FDA-Public Use
  Company Number: US-PFIZER INC-2012094199

PATIENT
  Sex: Female
  Weight: 61.224 kg

DRUGS (10)
  1. VALIUM [Concomitant]
     Indication: SLEEP DISORDER
  2. TRAZODONE [Concomitant]
     Indication: SLEEP DISORDER
     Dosage: UNK, DAILY
  3. ZOCOR [Concomitant]
     Indication: BLOOD CHOLESTEROL INCREASED
     Dosage: 40 MG, DAILY
  4. CHANTIX [Interacting]
     Dosage: 0.5 MG, DAILY
     Dates: start: 20120401, end: 20120401
  5. VITAMIN D [Concomitant]
     Dosage: UNK
  6. CHANTIX [Suspect]
     Indication: SMOKING CESSATION THERAPY
     Dosage: UNK
     Dates: start: 20080101
  7. ATENOLOL [Concomitant]
     Indication: HYPERTENSION
     Dosage: 25 MG, DAILY
  8. CHANTIX [Interacting]
     Dosage: 0.5 MG, UNK
     Dates: start: 20120401
  9. VICODIN [Concomitant]
     Indication: PAIN
     Dosage: UNK, AS NEEDED
  10. VALIUM [Concomitant]
     Indication: ANXIETY
     Dosage: 10 MG, AS NEEDED

REACTIONS (11)
  - ABDOMINAL DISCOMFORT [None]
  - DEPRESSED MOOD [None]
  - ABNORMAL DREAMS [None]
  - DIARRHOEA [None]
  - AGITATION [None]
  - IRRITABILITY [None]
  - INSOMNIA [None]
  - NAUSEA [None]
  - DRUG INTERACTION [None]
  - COLD SWEAT [None]
  - VOMITING [None]
